FAERS Safety Report 5036572-6 (Version None)
Quarter: 2006Q2

REPORT INFORMATION
  Report Type: 
  Country: None (occurrence: None)
  Receive Date: 20060623
  Receipt Date: 20060613
  Transmission Date: 20061013
  Serious: Yes (Hospitalization)
  Sender: FDA-Public Use
  Company Number: 2006075590

PATIENT
  Age: 76 Year
  Sex: Female

DRUGS (7)
  1. GABAPENTIN [Suspect]
     Indication: POST HERPETIC NEURALGIA
     Dates: start: 20060131
  2. LYRICA [Suspect]
     Indication: POST HERPETIC NEURALGIA
     Dosage: 300 MG (150 MG, 2 IN 1 D), ORAL
     Route: 048
     Dates: start: 20060308, end: 20060320
  3. CALCIUM WITH VITAMIN D (CALCIUM PHOSPHATE, CALCIUM SODIUM LACTATE, ERG [Concomitant]
  4. OPTINATE (RISEDRONATE SODIUM) [Concomitant]
  5. TENORMIN [Concomitant]
  6. TICLOPIDINE (TICLOPIDINE) [Concomitant]
  7. ALL OTHER THERAPEUTIC PRODUCTS (ALL OTHER THERAPEUTIC PRODUCTS) [Concomitant]

REACTIONS (6)
  - CAROTID ARTERY STENOSIS [None]
  - COGNITIVE DISORDER [None]
  - HEPATITIS C VIRUS [None]
  - HYPERTENSIVE CARDIOMYOPATHY [None]
  - LIVER DISORDER [None]
  - VASCULAR ENCEPHALOPATHY [None]
